FAERS Safety Report 21243991 (Version 2)
Quarter: 2023Q2

REPORT INFORMATION
  Report Type: Spontaneous
  Country: US (occurrence: US)
  Receive Date: 20220823
  Receipt Date: 20230605
  Transmission Date: 20230721
  Serious: No
  Sender: FDA-Public Use
  Company Number: US-ELI_LILLY_AND_COMPANY-US202208006709

PATIENT
  Sex: Female

DRUGS (5)
  1. FORTEO [Suspect]
     Active Substance: TERIPARATIDE
     Indication: Osteoporosis
     Dosage: UNK UNK, UNKNOWN
     Route: 065
     Dates: start: 2016, end: 2016
  2. FORTEO [Suspect]
     Active Substance: TERIPARATIDE
     Indication: Multiple fractures
     Dosage: UNK UNK, UNKNOWN
     Route: 065
     Dates: start: 20220810
  3. FORTEO [Suspect]
     Active Substance: TERIPARATIDE
     Indication: Atrophy
     Dosage: UNK UNK, UNKNOWN
     Route: 065
     Dates: start: 202208
  4. FORTEO [Suspect]
     Active Substance: TERIPARATIDE
     Indication: Gait disturbance
  5. CALCIUM [Concomitant]
     Active Substance: CALCIUM
     Indication: Product used for unknown indication

REACTIONS (9)
  - Multiple fractures [Unknown]
  - Disturbance in attention [Unknown]
  - Fracture [Unknown]
  - Memory impairment [Unknown]
  - Vitamin D increased [Unknown]
  - Atrophy [Unknown]
  - Fatigue [Unknown]
  - Pain in jaw [Unknown]
  - Gingival pain [Unknown]

NARRATIVE: CASE EVENT DATE: 20210101
